FAERS Safety Report 5344591-5 (Version None)
Quarter: 2007Q2

REPORT INFORMATION
  Report Type: 
  Country: None (occurrence: None)
  Receive Date: 20070604
  Receipt Date: 20070522
  Transmission Date: 20071010
  Serious: Yes (Other)
  Sender: FDA-Public Use
  Company Number: US-PFIZER INC-2007043497

PATIENT
  Sex: Female

DRUGS (1)
  1. CELEBREX [Suspect]

REACTIONS (1)
  - CARDIOVASCULAR DISORDER [None]
